FAERS Safety Report 21674698 (Version 4)
Quarter: 2023Q1

REPORT INFORMATION
  Report Type: Spontaneous
  Country: US (occurrence: US)
  Receive Date: 20221202
  Receipt Date: 20230228
  Transmission Date: 20230418
  Serious: No
  Sender: FDA-Public Use
  Company Number: US-SA-SAC20221130001145

PATIENT
  Age: 34 Year
  Sex: Male
  Weight: 124 kg

DRUGS (5)
  1. DUPIXENT [Suspect]
     Active Substance: DUPILUMAB
     Indication: Dermatitis atopic
     Dosage: 600 MG, 1X
     Route: 058
  2. DUPIXENT [Suspect]
     Active Substance: DUPILUMAB
     Dosage: 300 MG, QOW
     Route: 058
     Dates: start: 20221122
  3. HALOBETASOL PROPIONATE [Concomitant]
     Active Substance: HALOBETASOL PROPIONATE
  4. METHOTREXATE [Concomitant]
     Active Substance: METHOTREXATE
  5. CITALOPRAM [Concomitant]
     Active Substance: CITALOPRAM HYDROBROMIDE

REACTIONS (13)
  - Injection site pain [Not Recovered/Not Resolved]
  - Headache [Recovered/Resolved]
  - Injection site swelling [Not Recovered/Not Resolved]
  - Injection site bruising [Not Recovered/Not Resolved]
  - Skin haemorrhage [Not Recovered/Not Resolved]
  - Skin induration [Recovered/Resolved]
  - Dry skin [Not Recovered/Not Resolved]
  - Eye pruritus [Not Recovered/Not Resolved]
  - Dry eye [Not Recovered/Not Resolved]
  - Pruritus [Not Recovered/Not Resolved]
  - Skin exfoliation [Not Recovered/Not Resolved]
  - Condition aggravated [Not Recovered/Not Resolved]
  - Therapeutic product effect incomplete [Unknown]

NARRATIVE: CASE EVENT DATE: 20221122
